FAERS Safety Report 6732788-9 (Version None)
Quarter: 2010Q2

REPORT INFORMATION
  Report Type: 
  Country: None (occurrence: None)
  Receive Date: 20100519
  Receipt Date: 20100506
  Transmission Date: 20101027
  Serious: Yes (Hospitalization, Other)
  Sender: FDA-Public Use
  Company Number: DE-ELI_LILLY_AND_COMPANY-DE201005001629

PATIENT
  Age: 78 Year
  Sex: Female

DRUGS (6)
  1. CYMBALTA [Suspect]
     Indication: ANXIETY DISORDER
     Dosage: 90 MG, UNKNOWN
     Route: 065
  2. METOPROLOL SUCCINATE [Concomitant]
     Dosage: UNK, UNKNOWN
     Route: 065
  3. RASILEZ [Concomitant]
     Dosage: UNK, UNKNOWN
     Route: 065
  4. ATACAND [Concomitant]
     Dosage: UNK, UNKNOWN
     Route: 065
  5. AMLODIPIN                          /00972401/ [Concomitant]
     Dosage: UNK, UNKNOWN
     Route: 065
  6. ASPIRIN [Concomitant]
     Dosage: UNK, UNKNOWN
     Route: 065

REACTIONS (3)
  - DRUG INTERACTION [None]
  - HYPONATRAEMIA [None]
  - HYPOTONIA [None]
